FAERS Safety Report 9282773 (Version 2)
Quarter: 2013Q2

REPORT INFORMATION
  Report Type: Spontaneous
  Country: MA (occurrence: None)
  Receive Date: 20130506
  Receipt Date: 20130517
  Transmission Date: 20140414
  Serious: Yes (Other)
  Sender: FDA-Public Use
  Company Number: KAD201304-000505

PATIENT
  Age: 51 Year
  Sex: Female

DRUGS (2)
  1. RIBAVIRIN [Suspect]
     Indication: CHRONIC HEPATITIS C
     Dates: start: 20040215
  2. PEGINTERFERON [Suspect]
     Indication: CHRONIC HEPATITIS C
     Dates: start: 20041215

REACTIONS (10)
  - Autoimmune thrombocytopenia [None]
  - Thrombocytopenia [None]
  - Haemorrhage [None]
  - Epistaxis [None]
  - Gingival bleeding [None]
  - Transaminases increased [None]
  - Hypoalbuminaemia [None]
  - Prothrombin time prolonged [None]
  - Hypersplenism [None]
  - Portal hypertension [None]
